FAERS Safety Report 6227321-4 (Version None)
Quarter: 2009Q2

REPORT INFORMATION
  Report Type: 
  Country: None (occurrence: None)
  Receive Date: 20090612
  Receipt Date: 20090604
  Transmission Date: 20091009
  Serious: Yes (Death)
  Sender: FDA-Public Use
  Company Number: US-MYLANLABS-2009S1009845

PATIENT
  Age: 40 Year
  Sex: Male

DRUGS (1)
  1. FENTANYL TRANSDERMAL SYSTEM [Suspect]
     Indication: PAIN
     Dates: start: 20070603, end: 20070607

REACTIONS (2)
  - OVERDOSE [None]
  - THERAPEUTIC AGENT TOXICITY [None]
